FAERS Safety Report 4852012-1 (Version None)
Quarter: 2005Q4

REPORT INFORMATION
  Report Type: 
  Country: None (occurrence: None)
  Receive Date: 20051209
  Receipt Date: 20051130
  Transmission Date: 20060501
  Serious: No
  Sender: FDA-Public Use
  Company Number: BR-2005-025602

PATIENT
  Age: 45 Year
  Sex: Female

DRUGS (1)
  1. MIRENA [Suspect]
     Indication: CONTRACEPTION
     Dosage: 20 UG/DAY, CONT, INTRA-UTERINE
     Route: 015
     Dates: start: 20001101, end: 20050401

REACTIONS (6)
  - BENIGN UTERINE NEOPLASM [None]
  - ENDOMETRIOSIS [None]
  - MENORRHAGIA [None]
  - PELVIC PAIN [None]
  - PROCEDURAL PAIN [None]
  - UTERINE LEIOMYOMA [None]
